FAERS Safety Report 21542223 (Version 10)
Quarter: 2024Q2

REPORT INFORMATION
  Report Type: Spontaneous
  Country: US (occurrence: US)
  Receive Date: 20221102
  Receipt Date: 20240411
  Transmission Date: 20240716
  Serious: Yes (Other)
  Sender: FDA-Public Use
  Company Number: US-PFIZER INC-PV202200094336

PATIENT
  Age: 73 Year
  Sex: Female
  Weight: 77.8 kg

DRUGS (1)
  1. IBRANCE [Suspect]
     Active Substance: PALBOCICLIB
     Indication: Breast cancer metastatic
     Dosage: TAKE 1 TABLET DAILY FOR 21 DAYS AND THEN 7 DAYS OFF
     Route: 048

REACTIONS (2)
  - Pneumonia [Recovered/Resolved]
  - Feeling hot [Unknown]
